FAERS Safety Report 5194677-3 (Version None)
Quarter: 2006Q4

REPORT INFORMATION
  Report Type: 
  Country: None (occurrence: None)
  Receive Date: 20061229
  Receipt Date: 20061220
  Transmission Date: 20070319
  Serious: Yes (Other)
  Sender: FDA-Public Use
  Company Number: PHBS2006JP19868

PATIENT
  Sex: Female

DRUGS (13)
  1. TEGRETOL [Suspect]
     Route: 048
     Dates: end: 20000501
  2. DEPAKENE [Concomitant]
  3. PRIMIDONE [Concomitant]
  4. CERCINE [Concomitant]
  5. DOPASTON [Concomitant]
  6. DANTRIUM [Concomitant]
  7. MYSTAN [Concomitant]
     Dates: start: 19970101
  8. ERYTHROCIN [Concomitant]
  9. SPELEAR [Concomitant]
  10. NEUZYM [Concomitant]
  11. GASMOTIN [Concomitant]
  12. SODIUM CHLORIDE [Concomitant]
  13. ALEVIATIN [Concomitant]
     Dates: start: 19930201, end: 19940801

REACTIONS (1)
  - GINGIVAL HYPERTROPHY [None]
